FAERS Safety Report 11245277 (Version 1)
Quarter: 2015Q3

REPORT INFORMATION
  Report Type: Spontaneous
  Country: US (occurrence: US)
  Receive Date: 20150707
  Receipt Date: 20150707
  Transmission Date: 20151125
  Serious: Yes (Death)
  Sender: FDA-Public Use
  Company Number: US-DSJP-DSU-2015-121177

PATIENT

DRUGS (1)
  1. BENICAR [Suspect]
     Active Substance: OLMESARTAN MEDOXOMIL
     Indication: PRODUCT USED FOR UNKNOWN INDICATION
     Dosage: UNK
     Dates: start: 2005

REACTIONS (4)
  - Death [Fatal]
  - Diarrhoea [Unknown]
  - Weight decreased [Unknown]
  - Dehydration [Unknown]

NARRATIVE: CASE EVENT DATE: 20150215
